FAERS Safety Report 8009584-8 (Version None)
Quarter: 2011Q4

REPORT INFORMATION
  Report Type: 
  Country: None (occurrence: None)
  Receive Date: 20111228
  Receipt Date: 20111220
  Transmission Date: 20120403
  Serious: Yes (Other)
  Sender: FDA-Public Use
  Company Number: US-AMGEN-USASP2011067980

PATIENT
  Age: 55 Year
  Sex: Female

DRUGS (3)
  1. ENBREL [Suspect]
     Indication: RHEUMATOID ARTHRITIS
     Dosage: 50 MG, QWK
     Dates: start: 20111104
  2. ENBREL [Suspect]
     Indication: FIBROMYALGIA
  3. INSULIN [Concomitant]

REACTIONS (10)
  - INJECTION SITE PRURITUS [None]
  - INJECTION SITE HAEMATOMA [None]
  - MUSCULOSKELETAL STIFFNESS [None]
  - ERYTHEMA [None]
  - PAIN [None]
  - HYPERSENSITIVITY [None]
  - DEPRESSION [None]
  - HYPOGLYCAEMIA [None]
  - PRURITUS GENERALISED [None]
  - INJECTION SITE SWELLING [None]
